FAERS Safety Report 5793091-7 (Version None)
Quarter: 2008Q2

REPORT INFORMATION
  Report Type: 
  Country: None (occurrence: None)
  Receive Date: 20080626
  Receipt Date: 20080626
  Transmission Date: 20081010
  Serious: Yes (Hospitalization)
  Sender: FDA-Public Use
  Company Number: None

PATIENT
  Sex: Male
  Weight: 83 kg

DRUGS (5)
  1. BEVACIZUMAB (GENENTECH) [Suspect]
     Indication: GLIOBLASTOMA MULTIFORME
     Dosage: 828MG IV EVERY 2 WEEK
     Route: 042
     Dates: start: 20080505, end: 20080602
  2. TEMOZOLOMIDE [Suspect]
     Indication: GLIOBLASTOMA MULTIFORME
     Dosage: 105MG DAILY
     Dates: start: 20070924, end: 20080609
  3. PERCOCET [Concomitant]
  4. CONCERTA [Concomitant]
  5. BEVACIZUMAB [Concomitant]

REACTIONS (7)
  - CEREBRAL INFARCTION [None]
  - CEREBRAL ISCHAEMIA [None]
  - CEREBROVASCULAR DISORDER [None]
  - COGNITIVE DISORDER [None]
  - DYSARTHRIA [None]
  - HEADACHE [None]
  - MOTOR DYSFUNCTION [None]
